FAERS Safety Report 14342362 (Version 6)
Quarter: 2018Q1

REPORT INFORMATION
  Report Type: Report from Study
  Country: BR (occurrence: BR)
  Receive Date: 20180102
  Receipt Date: 20180207
  Transmission Date: 20180509
  Serious: Yes (Other)
  Sender: FDA-Public Use
  Company Number: PHHY2017BR144983

PATIENT
  Sex: Female
  Weight: 89 kg

DRUGS (7)
  1. CICLOSPORIN [Suspect]
     Active Substance: CYCLOSPORINE
     Indication: URTICARIA CHRONIC
     Dosage: UNK
     Route: 065
  2. CICLOSPORIN [Suspect]
     Active Substance: CYCLOSPORINE
     Dosage: 100 MG, QD
     Route: 048
     Dates: start: 201709
  3. GLIBENCLAMIDE [Concomitant]
     Active Substance: GLYBURIDE
     Indication: TYPE 2 DIABETES MELLITUS
     Dosage: 2 DF, QD, STARTED 1 YEAR AGO
     Route: 065
  4. PREDNISONE. [Concomitant]
     Active Substance: PREDNISONE
     Indication: PRODUCT USED FOR UNKNOWN INDICATION
     Route: 065
  5. XOLAIR [Suspect]
     Active Substance: OMALIZUMAB
     Indication: CHRONIC SPONTANEOUS URTICARIA
     Dosage: 300 MG (2 AMPOULES), QMO
     Route: 058
     Dates: start: 20170810, end: 201709
  6. ALLEGRA-D [Concomitant]
     Active Substance: FEXOFENADINE\PSEUDOEPHEDRINE
     Indication: URTICARIA
     Dosage: 2 DF, QD
     Route: 048
     Dates: start: 201704
  7. METFORMIN [Concomitant]
     Active Substance: METFORMIN HYDROCHLORIDE
     Indication: TYPE 2 DIABETES MELLITUS
     Dosage: 3 DF, QD, STARTED 3 MONTHS AGO
     Route: 048

REACTIONS (19)
  - Eye pruritus [Unknown]
  - Burning sensation [Recovering/Resolving]
  - Crepitations [Unknown]
  - Feeling abnormal [Unknown]
  - Pruritus [Recovered/Resolved]
  - Pain [Unknown]
  - Pruritus [Recovering/Resolving]
  - Skin haemorrhage [Unknown]
  - Mouth swelling [Recovering/Resolving]
  - Erythema [Recovering/Resolving]
  - Angioedema [Unknown]
  - Eye swelling [Recovering/Resolving]
  - Arthralgia [Unknown]
  - Drug ineffective [Unknown]
  - Lip swelling [Recovering/Resolving]
  - Urticaria [Recovering/Resolving]
  - Malaise [Unknown]
  - Pain in extremity [Recovering/Resolving]
  - Condition aggravated [Unknown]
